FAERS Safety Report 12770468 (Version 1)
Quarter: 2016Q3

REPORT INFORMATION
  Report Type: Spontaneous
  Country: US (occurrence: US)
  Receive Date: 20160921
  Receipt Date: 20160921
  Transmission Date: 20161109
  Serious: No
  Sender: FDA-Public Use
  Company Number: None

PATIENT
  Age: 68 Year
  Sex: Male
  Weight: 74.25 kg

DRUGS (4)
  1. TRAZDONE [Concomitant]
     Active Substance: TRAZODONE HYDROCHLORIDE
  2. HARVONI [Suspect]
     Active Substance: LEDIPASVIR\SOFOSBUVIR
     Indication: HEPATITIS C
     Route: 048
     Dates: start: 20160831, end: 20160921
  3. AMITIZA [Concomitant]
     Active Substance: LUBIPROSTONE
  4. LEVOTHY [Concomitant]

REACTIONS (4)
  - Diarrhoea [None]
  - Erectile dysfunction [None]
  - Urinary incontinence [None]
  - Micturition disorder [None]

NARRATIVE: CASE EVENT DATE: 20160921
